FAERS Safety Report 23300336 (Version 2)
Quarter: 2024Q1

REPORT INFORMATION
  Report Type: Spontaneous
  Country: GB (occurrence: GB)
  Receive Date: 20231215
  Receipt Date: 20240220
  Transmission Date: 20240410
  Serious: Yes (Hospitalization, Other)
  Sender: FDA-Public Use
  Company Number: GB-BAXTER-2023BAX037851

PATIENT
  Age: 44 Year
  Sex: Male
  Weight: 100 kg

DRUGS (2)
  1. EXTRANEAL [Suspect]
     Active Substance: CALCIUM CHLORIDE\ICODEXTRIN\MAGNESIUM CHLORIDE\SODIUM CHLORIDE\SODIUM LACTATE
     Dosage: 1 BAG, 7 DAYS A WEEK
     Route: 033
  2. CALCIUM CHLORIDE\DEXTROSE\MAGNESIUM CHLORIDE\SODIUM CHLORIDE [Suspect]
     Active Substance: CALCIUM CHLORIDE\DEXTROSE\MAGNESIUM CHLORIDE\SODIUM CHLORIDE
     Dosage: 2 BAGS, 7 DAYS A WEEK
     Route: 033

REACTIONS (5)
  - Peritonitis bacterial [Recovered/Resolved]
  - Fungal peritonitis [Recovered/Resolved]
  - Malaise [Unknown]
  - Abdominal pain [Unknown]
  - Peritoneal dialysis complication [Unknown]

NARRATIVE: CASE EVENT DATE: 20231204
